FAERS Safety Report 24174177 (Version 1)
Quarter: 2024Q3

REPORT INFORMATION
  Report Type: Spontaneous
  Country: AU (occurrence: AU)
  Receive Date: 20240805
  Receipt Date: 20240805
  Transmission Date: 20241017
  Serious: Yes (Other)
  Sender: SANDOZ
  Company Number: AU-SANDOZ-SDZ2023AU033297

PATIENT

DRUGS (1)
  1. TELMISARTAN [Suspect]
     Active Substance: TELMISARTAN
     Indication: Product used for unknown indication
     Dosage: 40/12.5MG
     Route: 065

REACTIONS (4)
  - Cardiac flutter [Unknown]
  - Heart rate increased [Unknown]
  - Dizziness [Unknown]
  - Paraesthesia [Unknown]
